FAERS Safety Report 9253414 (Version 1)
Quarter: 2013Q2

REPORT INFORMATION
  Report Type: Report from Study
  Country: US (occurrence: US)
  Receive Date: 20130425
  Receipt Date: 20130425
  Transmission Date: 20140414
  Serious: Yes (Other)
  Sender: FDA-Public Use
  Company Number: US-ROCHE-1196372

PATIENT
  Sex: Female

DRUGS (10)
  1. LUCENTIS [Suspect]
     Indication: MACULAR DEGENERATION
     Route: 031
  2. BEVACIZUMAB [Suspect]
     Indication: PRODUCT USED FOR UNKNOWN INDICATION
     Route: 031
  3. ACIPHEX [Concomitant]
  4. ALPRAZOLAM [Concomitant]
  5. CITALOPRAM [Concomitant]
  6. CLONAZEPAM [Concomitant]
  7. GABAPENTIN [Concomitant]
  8. IMIPRAMINE [Concomitant]
  9. LISINOPRIL [Concomitant]
  10. OMEPRAZOL [Concomitant]

REACTIONS (3)
  - Renal failure chronic [Not Recovered/Not Resolved]
  - Visual acuity reduced [Recovered/Resolved]
  - Eye disorder [Unknown]
